FAERS Safety Report 15567897 (Version 1)
Quarter: 2018Q4

REPORT INFORMATION
  Report Type: Spontaneous
  Country: FR (occurrence: FR)
  Receive Date: 20181030
  Receipt Date: 20181030
  Transmission Date: 20190205
  Serious: Yes (Other)
  Sender: FDA-Public Use
  Company Number: FR-PFIZER INC-2018444084

PATIENT
  Age: 43 Year
  Sex: Female
  Weight: 44 kg

DRUGS (4)
  1. HERCEPTIN [Suspect]
     Active Substance: TRASTUZUMAB
     Indication: BREAST CANCER
     Dosage: UNK UNK, CYCLIC
     Dates: start: 201211, end: 201312
  2. HERCEPTIN [Suspect]
     Active Substance: TRASTUZUMAB
     Dosage: 1 DF, CYCLIC
     Route: 042
     Dates: start: 20131224, end: 20140611
  3. CARBOPLATINE HOSPIRA [Suspect]
     Active Substance: CARBOPLATIN
     Indication: BREAST CANCER
     Dosage: 1 DF, CYCLIC
     Route: 042
     Dates: start: 20131224, end: 20140409
  4. TAXOTERE [Suspect]
     Active Substance: DOCETAXEL
     Indication: BREAST CANCER
     Dosage: 1 DF, CYCLIC
     Route: 042
     Dates: start: 20131224, end: 20140319

REACTIONS (2)
  - Arthralgia [Recovered/Resolved]
  - Myalgia [Recovered/Resolved]

NARRATIVE: CASE EVENT DATE: 201406
